FAERS Safety Report 12738106 (Version 17)
Quarter: 2017Q4

REPORT INFORMATION
  Report Type: Report from Study
  Country: FI (occurrence: FI)
  Receive Date: 20160913
  Receipt Date: 20171127
  Transmission Date: 20180320
  Serious: Yes (Hospitalization, Other)
  Sender: FDA-Public Use
  Company Number: FI-SA-2015SA076433

PATIENT
  Age: 42 Year
  Sex: Male
  Weight: 91.9 kg

DRUGS (40)
  1. SOLU-MEDROL [Concomitant]
     Active Substance: METHYLPREDNISOLONE SODIUM SUCCINATE
     Indication: PROPHYLAXIS
     Route: 042
     Dates: start: 20150413, end: 20150417
  2. SOLU-MEDROL [Concomitant]
     Active Substance: METHYLPREDNISOLONE SODIUM SUCCINATE
     Indication: PROPHYLAXIS
     Route: 042
     Dates: start: 20160426, end: 20160428
  3. PANADOL FORTE [Concomitant]
     Active Substance: ACETAMINOPHEN\CAFFEINE
     Indication: PROPHYLAXIS
     Route: 048
     Dates: start: 20150413, end: 20150417
  4. INSOMIN [Concomitant]
     Indication: DRUG THERAPY
     Route: 048
     Dates: start: 20081217
  5. SIRDALUD [Concomitant]
     Active Substance: TIZANIDINE
     Indication: DRUG THERAPY
     Route: 048
     Dates: start: 20130412
  6. GEFINA [Concomitant]
     Indication: DRUG THERAPY
     Route: 048
     Dates: start: 20100101
  7. GEFINA [Concomitant]
     Indication: ALOPECIA
     Route: 048
     Dates: start: 20100101
  8. DIMETICONE [Concomitant]
     Active Substance: DIMETHICONE
     Indication: DRUG THERAPY
     Dosage: 5 DROP
     Route: 048
     Dates: start: 20150414, end: 20150414
  9. HISTEC [Concomitant]
     Active Substance: CETIRIZINE HYDROCHLORIDE
     Indication: PROPHYLAXIS
     Route: 048
     Dates: start: 20160426, end: 20160428
  10. INSOMIN [Concomitant]
     Indication: INSOMNIA
     Route: 048
     Dates: start: 20081217
  11. PROPRAL [Concomitant]
     Indication: SINUS TACHYCARDIA
     Route: 048
     Dates: start: 19970101
  12. ACLOVIR [Concomitant]
     Indication: PROPHYLAXIS
     Route: 048
     Dates: start: 20160426
  13. BURANA [Concomitant]
     Active Substance: IBUPROFEN
     Indication: PYREXIA
     Route: 048
     Dates: start: 20150419, end: 20150521
  14. BURANA [Concomitant]
     Active Substance: IBUPROFEN
     Indication: HEADACHE
     Route: 048
     Dates: start: 20150522
  15. CORTISONE [Concomitant]
     Active Substance: CORTISONE\HYDROCORTISONE
  16. HISTEC [Concomitant]
     Active Substance: CETIRIZINE HYDROCHLORIDE
     Indication: PROPHYLAXIS
     Route: 048
     Dates: start: 20150413, end: 20150417
  17. PANADOL FORTE [Concomitant]
     Active Substance: ACETAMINOPHEN\CAFFEINE
     Indication: PROPHYLAXIS
     Route: 048
     Dates: start: 20160426, end: 20160428
  18. ZOPINOX [Concomitant]
     Active Substance: ZOPICLONE
     Indication: DRUG THERAPY
     Route: 048
     Dates: start: 20051118
  19. KETIPINOR [Concomitant]
     Active Substance: QUETIAPINE FUMARATE
     Indication: INSOMNIA
     Route: 048
     Dates: start: 20160201
  20. BURANA [Concomitant]
     Active Substance: IBUPROFEN
     Indication: PYREXIA
     Route: 048
     Dates: start: 20150522
  21. LEMTRADA [Suspect]
     Active Substance: ALEMTUZUMAB
     Indication: MULTIPLE SCLEROSIS RELAPSE
     Route: 041
     Dates: start: 20150413, end: 20150417
  22. CUPLATON [Concomitant]
     Indication: LACTOSE INTOLERANCE
     Dosage: 10 DROP
     Route: 048
     Dates: start: 20150415, end: 20150415
  23. SOMAC [Concomitant]
     Active Substance: PANTOPRAZOLE SODIUM
     Indication: PROPHYLAXIS
     Route: 048
     Dates: start: 20160426
  24. KETIPINOR [Concomitant]
     Active Substance: QUETIAPINE FUMARATE
     Indication: DRUG THERAPY
     Route: 048
     Dates: start: 20100906, end: 20160131
  25. KETIPINOR [Concomitant]
     Active Substance: QUETIAPINE FUMARATE
     Indication: DRUG THERAPY
     Route: 048
     Dates: start: 20160201
  26. ACYCLOVIR. [Concomitant]
     Active Substance: ACYCLOVIR
  27. PEGORION [Concomitant]
     Active Substance: POLYETHYLENE GLYCOL 4000
     Indication: DRUG THERAPY
     Route: 048
     Dates: start: 20050101
  28. PEGORION [Concomitant]
     Active Substance: POLYETHYLENE GLYCOL 4000
     Indication: CONSTIPATION
     Route: 048
     Dates: start: 20050101
  29. SIRDALUD [Concomitant]
     Active Substance: TIZANIDINE
     Indication: HEADACHE
     Route: 048
     Dates: start: 20130412
  30. ZOPINOX [Concomitant]
     Active Substance: ZOPICLONE
     Indication: INSOMNIA
     Route: 048
     Dates: start: 20051118
  31. BURANA [Concomitant]
     Active Substance: IBUPROFEN
     Indication: PYREXIA
     Route: 048
     Dates: start: 20150415, end: 20150415
  32. BURANA [Concomitant]
     Active Substance: IBUPROFEN
     Indication: HEADACHE
     Route: 048
     Dates: start: 20150415, end: 20150415
  33. BURANA [Concomitant]
     Active Substance: IBUPROFEN
     Indication: HEADACHE
     Route: 048
     Dates: start: 20150419, end: 20150521
  34. LEMTRADA [Suspect]
     Active Substance: ALEMTUZUMAB
     Indication: MULTIPLE SCLEROSIS RELAPSE
     Route: 041
     Dates: start: 20160426, end: 20160428
  35. SOMAC [Concomitant]
     Active Substance: PANTOPRAZOLE SODIUM
     Indication: PROPHYLAXIS
     Route: 048
     Dates: start: 20140709
  36. ACLOVIR [Concomitant]
     Indication: PROPHYLAXIS
     Route: 048
     Dates: start: 20150413, end: 20150713
  37. KETIPINOR [Concomitant]
     Active Substance: QUETIAPINE FUMARATE
     Indication: INSOMNIA
     Route: 048
     Dates: start: 20100906, end: 20160131
  38. PREDNISOLONE. [Concomitant]
     Active Substance: PREDNISOLONE
     Indication: DRUG THERAPY
     Route: 048
     Dates: start: 20150423, end: 20150423
  39. CUPLATON [Concomitant]
     Indication: LACTOSE INTOLERANCE
     Route: 048
     Dates: start: 20150414, end: 20150414
  40. NOVORAPID [Concomitant]
     Active Substance: INSULIN ASPART
     Indication: PROPHYLAXIS
     Route: 058
     Dates: start: 20160427, end: 20160427

REACTIONS (36)
  - Herpes zoster [Recovered/Resolved]
  - Myalgia [Recovered/Resolved]
  - Fatigue [Recovered/Resolved]
  - Fatigue [Not Recovered/Not Resolved]
  - Hepatic enzyme increased [Recovered/Resolved]
  - Acute sinusitis [Recovered/Resolved]
  - Gastroenteritis [Recovered/Resolved]
  - Anal infection [Recovered/Resolved]
  - Nasopharyngitis [Not Recovered/Not Resolved]
  - Oropharyngeal pain [Recovered/Resolved]
  - Tooth fracture [Recovered/Resolved]
  - Bronchitis [Recovered/Resolved]
  - Immune thrombocytopenic purpura [Recovered/Resolved]
  - Anal fissure [Recovering/Resolving]
  - Prostatitis [Recovering/Resolving]
  - Folliculitis [Recovered/Resolved]
  - Nausea [Recovered/Resolved]
  - C-reactive protein increased [Recovered/Resolved]
  - Headache [Recovered/Resolved]
  - Depression [Not Recovered/Not Resolved]
  - Prostatitis [Recovered/Resolved]
  - Dermatophytosis [Recovered/Resolved]
  - Nasopharyngitis [Recovered/Resolved]
  - Nasopharyngitis [Recovered/Resolved]
  - Peripheral swelling [Recovered/Resolved]
  - Oropharyngeal pain [Recovered/Resolved]
  - Oropharyngeal pain [Recovering/Resolving]
  - Headache [Recovered/Resolved]
  - Electrocardiogram abnormal [Recovered/Resolved]
  - Thrombophlebitis [Recovered/Resolved]
  - Tachycardia [Recovered/Resolved]
  - Hyperthyroidism [Recovered/Resolved]
  - Rash [Recovered/Resolved]
  - Hyperthyroidism [Not Recovered/Not Resolved]
  - Nasopharyngitis [Recovered/Resolved]
  - Hypothyroidism [Recovered/Resolved with Sequelae]

NARRATIVE: CASE EVENT DATE: 20150413
